FAERS Safety Report 22643663 (Version 1)
Quarter: 2023Q2

REPORT INFORMATION
  Report Type: Spontaneous
  Country: DE (occurrence: DE)
  Receive Date: 20230627
  Receipt Date: 20230627
  Transmission Date: 20230722
  Serious: Yes (Other)
  Sender: FDA-Public Use
  Company Number: DE-BAXTER-2023BAX024871

PATIENT

DRUGS (18)
  1. DOXORUBICIN [Suspect]
     Active Substance: DOXORUBICIN
     Indication: Plasma cell myeloma refractory
     Dosage: UNK, AS A PART OF FIRST LINE TREATMENT
     Route: 065
     Dates: start: 20140301, end: 20141101
  2. CYCLOPHOSPHAMIDE [Suspect]
     Active Substance: CYCLOPHOSPHAMIDE
     Indication: Plasma cell myeloma refractory
     Dosage: UNK, AS A PART OF FOURTH LINE TREATMENT
     Route: 065
     Dates: start: 20180901, end: 20190901
  3. BORTEZOMIB [Suspect]
     Active Substance: BORTEZOMIB
     Indication: Plasma cell myeloma refractory
     Dosage: UNK, AS A PART OF FIRST LINE TREATMENT
     Route: 065
     Dates: start: 20140301, end: 20141101
  4. BORTEZOMIB [Suspect]
     Active Substance: BORTEZOMIB
     Dosage: UNK, AS A PART OF THIRD LINE TREATMENT
     Route: 065
     Dates: start: 20171001, end: 20180801
  5. BENDAMUSTINE [Suspect]
     Active Substance: BENDAMUSTINE
     Indication: Plasma cell myeloma refractory
     Dosage: UNK, AS A PART OF MOST RECENT LINE TREATMENT
     Route: 065
     Dates: start: 20220801, end: 20230620
  6. DEXAMETHASONE [Suspect]
     Active Substance: DEXAMETHASONE
     Indication: Plasma cell myeloma refractory
     Dosage: UNK, AS A PART OF FIRST LINE TREATMENT
     Route: 065
     Dates: start: 20140301, end: 20141101
  7. DEXAMETHASONE [Suspect]
     Active Substance: DEXAMETHASONE
     Dosage: UNK, AS A PART OF SECOND LINE TREATMENT
     Route: 065
     Dates: start: 20150101, end: 20171001
  8. DEXAMETHASONE [Suspect]
     Active Substance: DEXAMETHASONE
     Dosage: UNK, AS A PART OF THIRD LINE TREATMENT
     Route: 065
     Dates: start: 20171001, end: 20180801
  9. DEXAMETHASONE [Suspect]
     Active Substance: DEXAMETHASONE
     Dosage: UNK, AS A PART OF FOURTH LINE TREATMENT
     Route: 065
     Dates: start: 20180901, end: 20190901
  10. DEXAMETHASONE [Suspect]
     Active Substance: DEXAMETHASONE
     Dosage: UNK, AS A PART OF FIFTH LINE TREATMENT
     Route: 065
     Dates: start: 20200701, end: 20210101
  11. DEXAMETHASONE [Suspect]
     Active Substance: DEXAMETHASONE
     Dosage: UNK, AS A PART OF SIXTH LINE TREATMENT
     Route: 065
     Dates: start: 20210101, end: 20220501
  12. LENALIDOMIDE [Suspect]
     Active Substance: LENALIDOMIDE
     Indication: Plasma cell myeloma refractory
     Dosage: UNK, AS A PART OF SECOND LINE TREATMENT
     Route: 065
     Dates: start: 20150101, end: 20171001
  13. DARATUMUMAB [Suspect]
     Active Substance: DARATUMUMAB
     Indication: Plasma cell myeloma refractory
     Dosage: UNK, AS A PART OF THIRD LINE TREATMENT
     Route: 065
     Dates: start: 20171001, end: 20180801
  14. POMALIDOMIDE [Suspect]
     Active Substance: POMALIDOMIDE
     Indication: Plasma cell myeloma refractory
     Dosage: UNK, AS A PART OF FOURTH LINE TREATMENT
     Route: 065
     Dates: start: 20180901, end: 20190901
  15. POMALIDOMIDE [Suspect]
     Active Substance: POMALIDOMIDE
     Dosage: UNK, AS A PART OF FIFTH LINE TREATMENT
     Route: 065
     Dates: start: 20200701, end: 20210101
  16. ELOTUZUMAB [Suspect]
     Active Substance: ELOTUZUMAB
     Indication: Plasma cell myeloma refractory
     Dosage: UNK, AS A PART OF FIFTH LINE TREATMENT
     Route: 065
     Dates: start: 20200701, end: 20210101
  17. CARFILZOMIB [Suspect]
     Active Substance: CARFILZOMIB
     Indication: Plasma cell myeloma refractory
     Dosage: UNK, AS A PART OF SIXTH LINE TREATMENT
     Route: 065
     Dates: start: 20210101, end: 20220501
  18. BLENREP [Suspect]
     Active Substance: BELANTAMAB MAFODOTIN-BLMF
     Indication: Plasma cell myeloma
     Dosage: UNK (05-AUG-202)
     Route: 065

REACTIONS (1)
  - Plasma cell myeloma [Unknown]
